FAERS Safety Report 17365421 (Version 2)
Quarter: 2020Q1

REPORT INFORMATION
  Report Type: Spontaneous
  Country: US (occurrence: US)
  Receive Date: 20200204
  Receipt Date: 20200213
  Transmission Date: 20200409
  Serious: No
  Sender: FDA-Public Use
  Company Number: US-ALEMBIC PHARMACUETICALS LIMITED-2020SCAL000029

PATIENT

DRUGS (1)
  1. ROPINIROLE HYDROCHLORIDE. [Suspect]
     Active Substance: ROPINIROLE HYDROCHLORIDE
     Indication: SILVER-RUSSELL SYNDROME
     Dosage: UNK
     Dates: end: 20200117

REACTIONS (5)
  - Expired product administered [Unknown]
  - Eye pruritus [Recovered/Resolved]
  - Photosensitivity reaction [Recovered/Resolved]
  - Photophobia [Recovered/Resolved]
  - Eye irritation [Recovered/Resolved]
